FAERS Safety Report 6063029-6 (Version None)
Quarter: 2009Q1

REPORT INFORMATION
  Report Type: 
  Country: None (occurrence: None)
  Receive Date: 20090203
  Receipt Date: 20090127
  Transmission Date: 20090719
  Serious: Yes (Life-Threatening, Hospitalization, Other)
  Sender: FDA-Public Use
  Company Number: US-MERCK-0812USA02574

PATIENT
  Age: 46 Year
  Sex: Male

DRUGS (5)
  1. ISENTRESS [Suspect]
     Indication: HIV INFECTION
     Route: 048
     Dates: start: 20080501, end: 20080901
  2. DEPAKOTE [Concomitant]
     Indication: BIPOLAR DISORDER
     Route: 048
     Dates: start: 20080901
  3. COMBIVIR [Suspect]
     Indication: HIV INFECTION
     Route: 048
     Dates: start: 20070901, end: 20080901
  4. LIPITOR [Concomitant]
     Route: 048
  5. NEURONTIN [Concomitant]
     Route: 048

REACTIONS (5)
  - ANAEMIA [None]
  - ANOGENITAL WARTS [None]
  - DUODENITIS [None]
  - GASTRITIS [None]
  - HAEMATOCHEZIA [None]
